FAERS Safety Report 5338429-X (Version None)
Quarter: 2007Q2

REPORT INFORMATION
  Report Type: 
  Country: None (occurrence: None)
  Receive Date: 20070322
  Receipt Date: 20060130
  Transmission Date: 20071010
  Serious: Yes (Other)
  Sender: FDA-Public Use
  Company Number: 200514945BCC

PATIENT
  Age: 58 Year
  Sex: Female
  Weight: 104.3273 kg

DRUGS (4)
  1. ALEVE [Suspect]
     Indication: MUSCULOSKELETAL PAIN
     Dosage: 440 MG, ONCE, ORAL
     Route: 048
     Dates: start: 20050828
  2. ALEVE [Suspect]
     Indication: MUSCULOSKELETAL PAIN
     Dosage: 440 MG, ONCE, ORAL
     Route: 048
     Dates: start: 20051207
  3. TAGAMET [Concomitant]
  4. NEXIUM [Concomitant]

REACTIONS (10)
  - ANAPHYLACTIC SHOCK [None]
  - BLOOD POTASSIUM DECREASED [None]
  - BLOOD PRESSURE DECREASED [None]
  - CONVULSION [None]
  - DYSPNOEA [None]
  - HYPERHIDROSIS [None]
  - LOSS OF CONSCIOUSNESS [None]
  - URTICARIA [None]
  - URTICARIA GENERALISED [None]
  - VISUAL DISTURBANCE [None]
